FAERS Safety Report 12435974 (Version 1)
Quarter: 2016Q2

REPORT INFORMATION
  Report Type: Spontaneous
  Country: US (occurrence: US)
  Receive Date: 20160604
  Receipt Date: 20160604
  Transmission Date: 20160815
  Serious: Yes (Other)
  Sender: FDA-Public Use
  Company Number: US-SUN PHARMACEUTICAL INDUSTRIES LTD-2016US-117638

PATIENT
  Age: 33 Year
  Sex: Female

DRUGS (8)
  1. TEMAZEPAM. [Suspect]
     Active Substance: TEMAZEPAM
     Indication: DEPRESSION
     Route: 065
  2. TEMAZEPAM. [Interacting]
     Active Substance: TEMAZEPAM
     Indication: ANXIETY
  3. QUETIAPINE. [Interacting]
     Active Substance: QUETIAPINE
     Indication: INSOMNIA
     Dosage: UNK
     Route: 065
  4. SERTRALINE [Interacting]
     Active Substance: SERTRALINE HYDROCHLORIDE
     Indication: DEPRESSION
  5. VENLAFAXINE [Interacting]
     Active Substance: VENLAFAXINE HYDROCHLORIDE
     Indication: PRODUCT USED FOR UNKNOWN INDICATION
     Dosage: 150 MG, DAILY (2 TO 4 TIMES THE RECOMMENDED STARTING DOSE
     Route: 065
  6. VENLAFAXINE [Interacting]
     Active Substance: VENLAFAXINE HYDROCHLORIDE
     Indication: PRODUCT USED FOR UNKNOWN INDICATION
     Dosage: SHE RESUMED HER PRESCRIBED DOSAGE
     Route: 065
  7. VENLAFAXINE [Interacting]
     Active Substance: VENLAFAXINE HYDROCHLORIDE
     Indication: PRODUCT USED FOR UNKNOWN INDICATION
     Dosage: 75 MG, DAILY
     Route: 065
  8. SERTRALINE [Interacting]
     Active Substance: SERTRALINE HYDROCHLORIDE
     Indication: ANXIETY
     Dosage: UNK
     Route: 065

REACTIONS (12)
  - Drug withdrawal syndrome [Recovered/Resolved]
  - Drug interaction [Recovered/Resolved]
  - Mood swings [Recovered/Resolved]
  - Abnormal behaviour [Recovered/Resolved]
  - Fatigue [Recovered/Resolved]
  - Depressed mood [Recovered/Resolved]
  - Panic attack [Recovered/Resolved]
  - Aggression [Recovered/Resolved]
  - Toxicity to various agents [Recovered/Resolved]
  - Suicidal ideation [Recovered/Resolved]
  - Akathisia [Recovered/Resolved]
  - Homicidal ideation [Recovered/Resolved]
